FAERS Safety Report 5885374-7 (Version None)
Quarter: 2008Q3

REPORT INFORMATION
  Report Type: 
  Country: None (occurrence: None)
  Receive Date: 20080916
  Receipt Date: 20080912
  Transmission Date: 20090109
  Serious: Yes (Life-Threatening, Hospitalization)
  Sender: FDA-Public Use
  Company Number: ES-EISAI MEDICAL RESEARCH-E2090-00548-SPO-ES

PATIENT
  Age: 78 Year
  Sex: Male

DRUGS (1)
  1. ZONEGRAN [Suspect]
     Indication: ARTHRALGIA
     Route: 048
     Dates: start: 20080728, end: 20080814

REACTIONS (1)
  - AGRANULOCYTOSIS [None]
